FAERS Safety Report 8998231 (Version 1)
Quarter: 2013Q1

REPORT INFORMATION
  Report Type: Spontaneous
  Country: FR (occurrence: FR)
  Receive Date: 20130104
  Receipt Date: 20130104
  Transmission Date: 20140127
  Serious: Yes (Hospitalization)
  Sender: FDA-Public Use
  Company Number: FR-SANOFI-AVENTIS-2013SA000154

PATIENT
  Age: 41 Year
  Sex: Male

DRUGS (6)
  1. STILNOX [Suspect]
     Indication: INSOMNIA
     Route: 048
     Dates: end: 20121123
  2. EFFEXOR [Suspect]
     Indication: DEPRESSION
     Route: 048
     Dates: end: 20121123
  3. LAMOTRIGINE [Suspect]
     Indication: BIPOLAR DISORDER
     Dosage: STRENGTH- 25 MG
     Route: 048
     Dates: start: 20121024, end: 20121123
  4. LORMETAZEPAM [Suspect]
     Indication: INSOMNIA
     Route: 048
     Dates: end: 20121123
  5. TRILEPTAL [Suspect]
     Indication: PRODUCT USED FOR UNKNOWN INDICATION
     Route: 048
     Dates: start: 20121106, end: 20121123
  6. DEPAKOTE [Concomitant]

REACTIONS (1)
  - Toxic epidermal necrolysis [Recovering/Resolving]
